FAERS Safety Report 8178759-X (Version None)
Quarter: 2012Q1

REPORT INFORMATION
  Report Type: 
  Country: None (occurrence: None)
  Receive Date: 20120301
  Receipt Date: 20120301
  Transmission Date: 20120608
  Serious: Yes (Other)
  Sender: FDA-Public Use
  Company Number: None

PATIENT
  Age: 62 Year
  Sex: Female
  Weight: 86.182 kg

DRUGS (1)
  1. CYMBALTA [Suspect]
     Indication: FIBROMYALGIA
     Dosage: 30 MG
     Route: 048
     Dates: start: 20120223, end: 20120224

REACTIONS (5)
  - PHARYNGEAL OEDEMA [None]
  - ANXIETY [None]
  - AGITATION [None]
  - INSOMNIA [None]
  - THROAT IRRITATION [None]
